FAERS Safety Report 14586439 (Version 1)
Quarter: 2018Q1

REPORT INFORMATION
  Report Type: Spontaneous
  Country: US (occurrence: US)
  Receive Date: 20180228
  Receipt Date: 20180228
  Transmission Date: 20180509
  Serious: No
  Sender: FDA-Public Use
  Company Number: None

PATIENT
  Age: 77 Year
  Sex: Female

DRUGS (2)
  1. IBRANCE [Suspect]
     Active Substance: PALBOCICLIB
     Indication: BREAST CANCER
     Dosage: DAILY FOR 21 DAYS ON, 7 DAYS OFF
     Route: 048
     Dates: start: 20180223
  2. IBRANCE [Suspect]
     Active Substance: PALBOCICLIB
     Indication: BREAST CANCER
     Dosage: FREQUENCY - DAILY FOR 21 DAYS ON, 7 DAYS OFF
     Route: 048
     Dates: start: 20180112, end: 20180222

REACTIONS (3)
  - Nausea [None]
  - Somnolence [None]
  - Decreased appetite [None]

NARRATIVE: CASE EVENT DATE: 20180201
